FAERS Safety Report 18433646 (Version 1)
Quarter: 2020Q4

REPORT INFORMATION
  Report Type: Spontaneous
  Country: IN (occurrence: IN)
  Receive Date: 20201027
  Receipt Date: 20201027
  Transmission Date: 20210114
  Serious: Yes (Hospitalization, Other)
  Sender: FDA-Public Use
  Company Number: IN-VIIV HEALTHCARE LIMITED-IN2020GSK208216

PATIENT
  Age: 49 Year
  Sex: Male

DRUGS (3)
  1. LAMIVUDINE. [Suspect]
     Active Substance: LAMIVUDINE
     Indication: HIV INFECTION
     Dosage: UNK
     Dates: end: 2017
  2. ZIDOVUDINE. [Suspect]
     Active Substance: ZIDOVUDINE
     Indication: HIV INFECTION
     Dosage: UNK
     Dates: end: 2017
  3. EFAVIRENZ. [Suspect]
     Active Substance: EFAVIRENZ
     Indication: HIV INFECTION

REACTIONS (27)
  - Chills [Recovered/Resolved]
  - Oropharyngeal pain [Recovered/Resolved]
  - Oesophageal ulcer [Recovered/Resolved]
  - Candida infection [Recovered/Resolved]
  - Gastrooesophageal reflux disease [Recovered/Resolved]
  - Hypochromic anaemia [Recovered/Resolved]
  - Thrombocytopenia [Recovered/Resolved]
  - Lymphocytosis [Recovered/Resolved]
  - Pyrexia [Recovered/Resolved]
  - Splenomegaly [Recovered/Resolved]
  - CD4 lymphocytes decreased [Recovered/Resolved]
  - Alanine aminotransferase increased [Recovered/Resolved]
  - HIV infection [Unknown]
  - Lymphadenitis bacterial [Recovered/Resolved]
  - Aspartate aminotransferase increased [Recovered/Resolved]
  - Granulomatous liver disease [Recovered/Resolved]
  - Lymphadenopathy [Recovered/Resolved]
  - Vomiting [Recovered/Resolved]
  - Treatment noncompliance [Unknown]
  - Mycobacterium avium complex infection [Recovered/Resolved]
  - Dysphagia [Recovered/Resolved]
  - Hepatomegaly [Recovered/Resolved]
  - Pharyngeal ulceration [Recovered/Resolved]
  - Erosive duodenitis [Recovered/Resolved]
  - Granulomatous lymphadenitis [Recovered/Resolved]
  - Oesophagitis [Recovered/Resolved]
  - Abdominal pain [Recovered/Resolved]

NARRATIVE: CASE EVENT DATE: 2017
